FAERS Safety Report 17152052 (Version 1)
Quarter: 2019Q4

REPORT INFORMATION
  Report Type: Report from Study
  Country: DE (occurrence: DE)
  Receive Date: 20191213
  Receipt Date: 20191213
  Transmission Date: 20200122
  Serious: Yes (Hospitalization, Other)
  Sender: FDA-Public Use
  Company Number: DE-MYLANLABS-2019M1122379

PATIENT
  Age: 44 Year
  Sex: Male

DRUGS (4)
  1. TAMSULOSINE                        /01280301/ [Concomitant]
     Active Substance: TAMSULOSIN
     Indication: URINARY INCONTINENCE
     Dosage: 0.4 MG
     Route: 065
     Dates: start: 201607
  2. SIPONIMOD [Suspect]
     Active Substance: SIPONIMOD
     Indication: SECONDARY PROGRESSIVE MULTIPLE SCLEROSIS
     Dosage: 2 MG
     Route: 048
     Dates: start: 20160331
  3. SIPONIMOD [Suspect]
     Active Substance: SIPONIMOD
     Indication: SECONDARY PROGRESSIVE MULTIPLE SCLEROSIS
     Dosage: UNK
     Route: 048
     Dates: start: 20130903, end: 20160302
  4. VALSARTAN. [Suspect]
     Active Substance: VALSARTAN
     Indication: PRODUCT USED FOR UNKNOWN INDICATION
     Dosage: UNK
     Route: 065
     Dates: end: 20190613

REACTIONS (3)
  - Circulatory collapse [Recovered/Resolved]
  - Muscular weakness [Recovered/Resolved]
  - Gait disturbance [Not Recovered/Not Resolved]

NARRATIVE: CASE EVENT DATE: 20160720
